FAERS Safety Report 9345662 (Version 1)
Quarter: 2013Q2

REPORT INFORMATION
  Report Type: Spontaneous
  Country: IN (occurrence: IN)
  Receive Date: 20130613
  Receipt Date: 20130613
  Transmission Date: 20140414
  Serious: Yes (Other)
  Sender: FDA-Public Use
  Company Number: PHHY2013IN058944

PATIENT
  Age: 53 Year
  Sex: Male

DRUGS (4)
  1. AMITRIPTYLINE [Suspect]
  2. CARBAMAZEPINE [Suspect]
  3. PREGABALIN [Suspect]
  4. ESCITALOPRAM [Suspect]

REACTIONS (10)
  - Normal pressure hydrocephalus [Recovering/Resolving]
  - Gait disturbance [Recovering/Resolving]
  - Lethargy [Recovering/Resolving]
  - Memory impairment [Recovering/Resolving]
  - Lack of spontaneous speech [Recovering/Resolving]
  - Apathy [Recovering/Resolving]
  - Urinary incontinence [Recovering/Resolving]
  - Movement disorder [Recovering/Resolving]
  - Dementia [Recovering/Resolving]
  - Peripheral sensorimotor neuropathy [Recovering/Resolving]
